FAERS Safety Report 25000698 (Version 1)
Quarter: 2025Q1

REPORT INFORMATION
  Report Type: Spontaneous
  Country: US (occurrence: US)
  Receive Date: 20250222
  Receipt Date: 20250222
  Transmission Date: 20250409
  Serious: No
  Sender: SANOFI AVENTIS
  Company Number: US-SA-2025SA051040

PATIENT
  Sex: Female

DRUGS (31)
  1. DUPIXENT [Suspect]
     Active Substance: DUPILUMAB
     Indication: Dermatitis atopic
     Dosage: 300 MG, QOW
     Route: 058
  2. BENEFIBER [Concomitant]
     Active Substance: STARCH, WHEAT
  3. BISACODYL [Concomitant]
     Active Substance: BISACODYL
  4. CLEARLAX [Concomitant]
     Active Substance: POLYETHYLENE GLYCOL 3350
  5. ASPIRIN [Concomitant]
     Active Substance: ASPIRIN
  6. BENTYL [Concomitant]
     Active Substance: DICYCLOMINE HYDROCHLORIDE
  7. CALCIUM [Concomitant]
     Active Substance: CALCIUM
  8. CLOBETASOL [Concomitant]
     Active Substance: CLOBETASOL
  9. DOXYCYCLINE [Concomitant]
     Active Substance: DOXYCYCLINE
  10. ELIQUIS [Concomitant]
     Active Substance: APIXABAN
  11. EZETIMIBE [Concomitant]
     Active Substance: EZETIMIBE
  12. FARXIGA [Concomitant]
     Active Substance: DAPAGLIFLOZIN PROPANEDIOL
  13. FERGON [Concomitant]
     Active Substance: FERROUS GLUCONATE
  14. GABAPENTIN [Concomitant]
     Active Substance: GABAPENTIN
  15. GLUCOSAMINE [Concomitant]
     Active Substance: GLUCOSAMINE
  16. HYDROCODONE [Concomitant]
     Active Substance: HYDROCODONE
  17. JANUMET [Concomitant]
     Active Substance: METFORMIN HYDROCHLORIDE\SITAGLIPTIN PHOSPHATE
  18. LASIX [Concomitant]
     Active Substance: FUROSEMIDE
  19. METAMUCIL [Concomitant]
     Active Substance: PLANTAGO SEED
  20. METOPROLOL SUCCINATE [Concomitant]
     Active Substance: METOPROLOL SUCCINATE
  21. MIRALAX [Concomitant]
     Active Substance: POLYETHYLENE GLYCOL 3350
  22. NEURONTIN [Concomitant]
     Active Substance: GABAPENTIN
  23. PLAQUENIL [Concomitant]
     Active Substance: HYDROXYCHLOROQUINE SULFATE
  24. POTASSIUM CHLORIDE [Concomitant]
     Active Substance: POTASSIUM CHLORIDE
  25. PREDNISONE [Concomitant]
     Active Substance: PREDNISONE
  26. RAMIPRIL [Concomitant]
     Active Substance: RAMIPRIL
  27. ROPINIROLE HYDROCHLORIDE [Concomitant]
     Active Substance: ROPINIROLE HYDROCHLORIDE
  28. SYNTHROID [Concomitant]
     Active Substance: LEVOTHYROXINE SODIUM
  29. VASCEPA [Concomitant]
     Active Substance: ICOSAPENT ETHYL
  30. VITAMIN B12 [Concomitant]
     Active Substance: CYANOCOBALAMIN
  31. VYTORIN [Concomitant]
     Active Substance: EZETIMIBE\SIMVASTATIN

REACTIONS (9)
  - Dry skin [Not Recovered/Not Resolved]
  - Constipation [Not Recovered/Not Resolved]
  - Influenza [Not Recovered/Not Resolved]
  - Contusion [Not Recovered/Not Resolved]
  - Full blood count increased [Not Recovered/Not Resolved]
  - Diarrhoea [Not Recovered/Not Resolved]
  - Pruritus [Not Recovered/Not Resolved]
  - Injection site pain [Not Recovered/Not Resolved]
  - Injection site erythema [Not Recovered/Not Resolved]
